FAERS Safety Report 20078017 (Version 1)
Quarter: 2021Q4

REPORT INFORMATION
  Report Type: Spontaneous
  Country: GB (occurrence: GB)
  Receive Date: 20211117
  Receipt Date: 20211117
  Transmission Date: 20220303
  Serious: Yes (Other)
  Sender: FDA-Public Use
  Company Number: GB-TAKEDA-2019TUS070037

PATIENT
  Age: 80 Year
  Sex: Male

DRUGS (9)
  1. LENALIDOMIDE [Suspect]
     Active Substance: LENALIDOMIDE
     Indication: Plasma cell myeloma
     Route: 048
     Dates: end: 20210811
  2. LENALIDOMIDE [Suspect]
     Active Substance: LENALIDOMIDE
     Route: 065
  3. DEXAMETHASONE [Suspect]
     Active Substance: DEXAMETHASONE
     Indication: Plasma cell myeloma
     Dates: start: 20210617, end: 20210811
  4. DEXAMETHASONE [Suspect]
     Active Substance: DEXAMETHASONE
     Route: 065
  5. IXAZOMIB [Suspect]
     Active Substance: IXAZOMIB
     Indication: Plasma cell myeloma
     Dosage: ON DAYS 1,8 AND 15 OF A 28 DAY CYCLE FOR MYELOMA
     Route: 048
     Dates: start: 20190617, end: 20210811
  6. IXAZOMIB [Suspect]
     Active Substance: IXAZOMIB
     Route: 048
     Dates: start: 20191115, end: 20210811
  7. NINLARO [Suspect]
     Active Substance: IXAZOMIB CITRATE
     Indication: Plasma cell myeloma
     Dosage: CYCLIC
     Route: 048
     Dates: start: 20190617, end: 20210811
  8. NINLARO [Suspect]
     Active Substance: IXAZOMIB CITRATE
     Dosage: 4MG, CYCLIC
     Route: 048
     Dates: start: 20190617, end: 20190811
  9. NINLARO [Suspect]
     Active Substance: IXAZOMIB CITRATE
     Route: 048
     Dates: start: 20191115, end: 20210811

REACTIONS (6)
  - Plasma cell myeloma [Unknown]
  - Plasma cell myeloma [Unknown]
  - Lower respiratory tract infection [Unknown]
  - Cough [Unknown]
  - Neoplasm progression [Unknown]
  - Off label use [Unknown]

NARRATIVE: CASE EVENT DATE: 20210811
